FAERS Safety Report 4532974-2 (Version None)
Quarter: 2004Q4

REPORT INFORMATION
  Report Type: 
  Country: None (occurrence: None)
  Receive Date: 20041221
  Receipt Date: 20041214
  Transmission Date: 20050328
  Serious: Yes (Hospitalization)
  Sender: FDA-Public Use
  Company Number: 200419615US

PATIENT
  Age: 64 Year
  Sex: Male

DRUGS (4)
  1. ALLEGRA-D [Suspect]
     Route: 048
     Dates: start: 20040806, end: 20040809
  2. LEVAQUIN [Concomitant]
  3. DDAVP [Concomitant]
  4. CIPRO [Concomitant]

REACTIONS (3)
  - BENIGN PROSTATIC HYPERPLASIA [None]
  - PROSTATIC DISORDER [None]
  - URINARY RETENTION [None]
